FAERS Safety Report 8002712-X (Version None)
Quarter: 2011Q4

REPORT INFORMATION
  Report Type: 
  Country: None (occurrence: None)
  Receive Date: 20111222
  Receipt Date: 20111216
  Transmission Date: 20120403
  Serious: Yes (Hospitalization, Other)
  Sender: FDA-Public Use
  Company Number: US-MERCK-1108USA02424

PATIENT
  Age: 59 Year
  Sex: Female

DRUGS (4)
  1. FOSAMAX [Suspect]
     Indication: OSTEOPOROSIS
     Route: 048
     Dates: start: 19980101, end: 20080907
  2. VITAMIN D (UNSPECIFIED) [Concomitant]
     Route: 065
     Dates: start: 20100815, end: 20101017
  3. ALENDRONATE SODIUM [Suspect]
     Indication: OSTEOPOROSIS
     Route: 048
     Dates: start: 20080908, end: 20110101
  4. ACTONEL [Concomitant]
     Indication: OSTEOPOROSIS
     Route: 065
     Dates: start: 20000101, end: 20000101

REACTIONS (26)
  - MOBILITY DECREASED [None]
  - MENISCUS LESION [None]
  - ACTIVITIES OF DAILY LIVING IMPAIRED [None]
  - ARTHRITIS [None]
  - VITAMIN D DEFICIENCY [None]
  - OSTEOARTHRITIS [None]
  - JOINT EFFUSION [None]
  - FRACTURE DISPLACEMENT [None]
  - SKIN NECROSIS [None]
  - ANAEMIA POSTOPERATIVE [None]
  - GASTROOESOPHAGEAL REFLUX DISEASE [None]
  - TOOTH DISORDER [None]
  - NASAL DISORDER [None]
  - CONSTIPATION [None]
  - BURNING SENSATION [None]
  - FEMUR FRACTURE [None]
  - UTERINE DISORDER [None]
  - THROMBOCYTOPENIA [None]
  - FOOT FRACTURE [None]
  - BLOOD CHOLESTEROL INCREASED [None]
  - BONE LESION [None]
  - HYPOKALAEMIA [None]
  - SKIN ULCER [None]
  - FALL [None]
  - COMMINUTED FRACTURE [None]
  - ESCHAR [None]
